FAERS Safety Report 5056799-7 (Version None)
Quarter: 2006Q2

REPORT INFORMATION
  Report Type: 
  Country: None (occurrence: None)
  Receive Date: 20060616
  Receipt Date: 20060517
  Transmission Date: 20061013
  Serious: No
  Sender: FDA-Public Use
  Company Number: 2006US001109

PATIENT
  Age: 67 Year
  Sex: Female

DRUGS (5)
  1. VESICARE [Suspect]
     Indication: HYPERTONIC BLADDER
     Dosage: 5 MG, ORAL
     Route: 048
  2. ASPIRIN [Concomitant]
  3. ATIVAN [Concomitant]
  4. VASOTEC [Concomitant]
  5. INSPRA [Concomitant]

REACTIONS (1)
  - DRUG INEFFECTIVE [None]
